FAERS Safety Report 8143263-1 (Version None)
Quarter: 2012Q1

REPORT INFORMATION
  Report Type: 
  Country: None (occurrence: None)
  Receive Date: 20120217
  Receipt Date: 20120214
  Transmission Date: 20120608
  Serious: Yes (Other)
  Sender: FDA-Public Use
  Company Number: US-PFIZER INC-2012040487

PATIENT
  Sex: Female

DRUGS (1)
  1. LIPITOR [Suspect]
     Indication: BLOOD TRIGLYCERIDES INCREASED
     Dosage: 20 MG, UNK

REACTIONS (4)
  - HYPERSENSITIVITY [None]
  - RASH [None]
  - SWOLLEN TONGUE [None]
  - PHARYNGEAL OEDEMA [None]
